FAERS Safety Report 9168181 (Version 1)
Quarter: 2013Q1

REPORT INFORMATION
  Report Type: Spontaneous
  Country: ZA (occurrence: ZA)
  Receive Date: 20130318
  Receipt Date: 20130318
  Transmission Date: 20140127
  Serious: Yes (Hospitalization, Other)
  Sender: FDA-Public Use
  Company Number: ZA-ELI_LILLY_AND_COMPANY-ZA201303002846

PATIENT
  Age: 44 Year
  Sex: Female

DRUGS (3)
  1. HUMULIN 30% REGULAR, 70% NPH [Suspect]
     Indication: DIABETES MELLITUS
     Dosage: 38 U, EACH MORNING
     Route: 058
     Dates: start: 2012
  2. HUMULIN 30% REGULAR, 70% NPH [Suspect]
     Dosage: 18 U, EACH EVENING
     Route: 058
     Dates: start: 2012
  3. RIDAQ [Concomitant]
     Indication: HYPERTENSION
     Dosage: 1 DF, QD
     Route: 048
     Dates: start: 2012

REACTIONS (1)
  - Syncope [Unknown]
